FAERS Safety Report 19285417 (Version 2)
Quarter: 2021Q2

REPORT INFORMATION
  Report Type: Spontaneous
  Country: DE (occurrence: DE)
  Receive Date: 20210521
  Receipt Date: 20210624
  Transmission Date: 20210717
  Serious: Yes (Hospitalization)
  Sender: FDA-Public Use
  Company Number: DE-VERTEX PHARMACEUTICALS-2021-007781

PATIENT
  Age: 16 Year
  Sex: Male
  Weight: 55 kg

DRUGS (12)
  1. VITAMIN E [Concomitant]
     Active Substance: .ALPHA.-TOCOPHEROL
  2. KALYDECO [Suspect]
     Active Substance: IVACAFTOR
     Dosage: ONE TABLET IN EVENING
     Route: 048
     Dates: start: 20210314
  3. KALYDECO [Suspect]
     Active Substance: IVACAFTOR
     Indication: CYSTIC FIBROSIS
     Dosage: ONE TABLET IN EVENING
     Route: 048
     Dates: start: 202101, end: 20210211
  4. KREON [Concomitant]
     Active Substance: PANCRELIPASE
  5. KAFTRIO [Suspect]
     Active Substance: ELEXACAFTOR\IVACAFTOR\TEZACAFTOR
     Dosage: 2 TABLET IN MORNING
     Route: 048
     Dates: start: 20210314
  6. MAGNESIUM [Concomitant]
     Active Substance: MAGNESIUM
     Dosage: 1200 MG, QD
  7. VITAMIN A [RETINOL] [Concomitant]
     Active Substance: RETINOL
  8. VITAMIN D [COLECALCIFEROL] [Concomitant]
     Active Substance: CHOLECALCIFEROL
  9. KAFTRIO [Suspect]
     Active Substance: ELEXACAFTOR\IVACAFTOR\TEZACAFTOR
     Indication: CYSTIC FIBROSIS
     Dosage: 2 TABLET (75MG IVA/50MG TEZA/100MG ELEXA)  IN MORNING
     Route: 048
     Dates: start: 202101, end: 20210211
  10. VITAMIN K [MENADIONE] [Concomitant]
     Active Substance: MENADIONE
  11. LANTUS [Concomitant]
     Active Substance: INSULIN GLARGINE
  12. NOVORAPID [Concomitant]
     Active Substance: INSULIN ASPART

REACTIONS (3)
  - Blood sodium decreased [Recovered/Resolved]
  - Muscle spasms [Recovered/Resolved]
  - Blood chloride decreased [Recovered/Resolved]

NARRATIVE: CASE EVENT DATE: 20210211
